FAERS Safety Report 4377434-7 (Version None)
Quarter: 2004Q2

REPORT INFORMATION
  Report Type: 
  Country: None (occurrence: None)
  Receive Date: 20040609
  Receipt Date: 20040224
  Transmission Date: 20050107
  Serious: No
  Sender: FDA-Public Use
  Company Number: 2004196134US

PATIENT
  Age: 78 Year
  Sex: Female

DRUGS (11)
  1. BEXTRA [Suspect]
     Indication: OSTEOARTHRITIS
     Dosage: 20 MG, QD,
     Dates: start: 20040105, end: 20040114
  2. DIGOXIN [Concomitant]
  3. WARFARIN SODIUM [Concomitant]
  4. ATENOLOL [Concomitant]
  5. POTASSIUM [Concomitant]
  6. DETROL [Concomitant]
  7. PANTOPRAZOLE [Concomitant]
  8. FUROSEMIDE [Concomitant]
  9. NITROFURANTOIN [Concomitant]
  10. TORSEMIDE [Concomitant]
  11. ZESTRIL [Concomitant]

REACTIONS (1)
  - VISUAL DISTURBANCE [None]
